FAERS Safety Report 6230395-8 (Version None)
Quarter: 2009Q2

REPORT INFORMATION
  Report Type: 
  Country: None (occurrence: None)
  Receive Date: 20090615
  Receipt Date: 20090608
  Transmission Date: 20091009
  Serious: No
  Sender: FDA-Public Use
  Company Number: US-ABBOTT-09P-163-0562650-00

PATIENT
  Age: 67 Year
  Sex: Female
  Weight: 66.738 kg

DRUGS (6)
  1. TRILIPIX [Suspect]
     Indication: BLOOD TRIGLYCERIDES ABNORMAL
     Dates: start: 20090226, end: 20090226
  2. SYNTHROID [Concomitant]
     Indication: HYPOTHYROIDISM
  3. FOSAMAX [Concomitant]
     Indication: SUPPLEMENTATION THERAPY
  4. ADVAIR HFA [Concomitant]
     Indication: ASTHMA
  5. SINGULAIR [Concomitant]
     Indication: ASTHMA
  6. HYDROCHLOROTHIAZIDE [Concomitant]
     Indication: HYPERTENSION

REACTIONS (3)
  - ABASIA [None]
  - VERTIGO [None]
  - VOMITING [None]
